FAERS Safety Report 7878050-2 (Version None)
Quarter: 2011Q4

REPORT INFORMATION
  Report Type: 
  Country: None (occurrence: None)
  Receive Date: 20111101
  Receipt Date: 20111020
  Transmission Date: 20120403
  Serious: Yes (Hospitalization, Other)
  Sender: FDA-Public Use
  Company Number: US-BIOGENIDEC-2011BI027596

PATIENT
  Age: 50 Year
  Sex: Female

DRUGS (1)
  1. TYSABRI [Suspect]
     Indication: MULTIPLE SCLEROSIS
     Route: 042
     Dates: start: 20110427

REACTIONS (13)
  - MENTAL STATUS CHANGES [None]
  - HYPERTENSION [None]
  - ANXIETY [None]
  - DEHYDRATION [None]
  - CAMPYLOBACTER INTESTINAL INFECTION [None]
  - ELECTROLYTE IMBALANCE [None]
  - FATIGUE [None]
  - NEUROGENIC BLADDER [None]
  - MENINGIOMA [None]
  - STATUS EPILEPTICUS [None]
  - ASTHENIA [None]
  - RESPIRATORY FAILURE [None]
  - PAIN [None]
